FAERS Safety Report 19702328 (Version 1)
Quarter: 2021Q3

REPORT INFORMATION
  Report Type: Spontaneous
  Country: ZA (occurrence: ZA)
  Receive Date: 20210814
  Receipt Date: 20210814
  Transmission Date: 20211014
  Serious: Yes (Other)
  Sender: FDA-Public Use
  Company Number: NVSC2021ZA178189

PATIENT
  Sex: Female

DRUGS (1)
  1. ENALAPRIL [Suspect]
     Active Substance: ENALAPRIL
     Indication: HYPERTENSION
     Dosage: 20 MG
     Route: 048

REACTIONS (5)
  - Fatigue [Unknown]
  - Oedema peripheral [Unknown]
  - Dyspnoea [Unknown]
  - Oedema [Unknown]
  - Pulmonary oedema [Unknown]
